FAERS Safety Report 8598123-9 (Version None)
Quarter: 2012Q3

REPORT INFORMATION
  Report Type: 
  Country: None (occurrence: None)
  Receive Date: 20120802
  Receipt Date: 20120725
  Transmission Date: 20120928
  Serious: Yes (Other)
  Sender: FDA-Public Use
  Company Number: 1207-400

PATIENT
  Sex: Female

DRUGS (1)
  1. EYLEA [Suspect]
     Dosage: 2 MG, INTRAVITREAL

REACTIONS (1)
  - UVEITIS [None]
